FAERS Safety Report 10196394 (Version 1)
Quarter: 2014Q2

REPORT INFORMATION
  Report Type: Spontaneous
  Country: FR (occurrence: FR)
  Receive Date: 20140527
  Receipt Date: 20140527
  Transmission Date: 20141212
  Serious: Yes (Hospitalization)
  Sender: FDA-Public Use
  Company Number: FR-JNJFOC-20140511465

PATIENT
  Age: 87 Year
  Sex: Female

DRUGS (10)
  1. REMINYL LP [Suspect]
     Indication: PRODUCT USED FOR UNKNOWN INDICATION
     Route: 048
     Dates: start: 201202, end: 201311
  2. EBIXA [Suspect]
     Indication: PRODUCT USED FOR UNKNOWN INDICATION
     Route: 048
     Dates: start: 201111, end: 20140108
  3. PERINDOPRIL [Concomitant]
     Route: 065
  4. PLAVIX [Concomitant]
     Route: 065
     Dates: end: 20131230
  5. PARACETAMOL [Concomitant]
     Route: 065
  6. FORLAX [Concomitant]
     Route: 065
  7. SERESTA [Concomitant]
     Route: 065
  8. XALATAN [Concomitant]
     Route: 065
  9. PILOCARPINE [Concomitant]
     Route: 065
  10. DIFFU K [Concomitant]
     Route: 065

REACTIONS (6)
  - Urinary retention [Not Recovered/Not Resolved]
  - Angle closure glaucoma [Not Recovered/Not Resolved]
  - Anxiety [Not Recovered/Not Resolved]
  - Abnormal behaviour [Not Recovered/Not Resolved]
  - Headache [Not Recovered/Not Resolved]
  - Fall [Not Recovered/Not Resolved]
